FAERS Safety Report 6757084-5 (Version None)
Quarter: 2010Q2

REPORT INFORMATION
  Report Type: 
  Country: None (occurrence: None)
  Receive Date: 20100604
  Receipt Date: 20100601
  Transmission Date: 20101027
  Serious: Yes (Other)
  Sender: FDA-Public Use
  Company Number: CA-MERCK-0810CAN00003

PATIENT
  Age: 65 Year
  Sex: Female
  Weight: 104 kg

DRUGS (10)
  1. JANUVIA [Suspect]
     Indication: TYPE 2 DIABETES MELLITUS
     Route: 048
     Dates: start: 20080917, end: 20080924
  2. ASPIRIN [Concomitant]
     Indication: THROMBOSIS PROPHYLAXIS
     Route: 065
  3. ATACAND [Concomitant]
     Indication: HYPERTENSION
     Route: 065
  4. ZETIA [Concomitant]
     Route: 048
  5. HYDROCHLOROTHIAZIDE [Concomitant]
     Indication: HYPERTENSION
     Route: 065
  6. NOVORAPID [Concomitant]
     Route: 051
  7. LEVEMIR [Concomitant]
     Route: 058
  8. SYNTHROID [Concomitant]
     Route: 065
  9. METFORMIN [Concomitant]
     Route: 048
  10. MICRO-K [Concomitant]
     Route: 065

REACTIONS (3)
  - MACULAR OEDEMA [None]
  - OFF LABEL USE [None]
  - VISION BLURRED [None]
